FAERS Safety Report 6507087-0 (Version None)
Quarter: 2009Q4

REPORT INFORMATION
  Report Type: 
  Country: None (occurrence: None)
  Receive Date: 20091221
  Receipt Date: 20091209
  Transmission Date: 20100525
  Serious: Yes (Other)
  Sender: FDA-Public Use
  Company Number: PHHY2009IN53404

PATIENT
  Age: 42 Year
  Sex: Male

DRUGS (1)
  1. ACLASTA [Suspect]
     Indication: OSTEOPOROSIS
     Dosage: 5MG/100ML

REACTIONS (6)
  - CHEST PAIN [None]
  - FATIGUE [None]
  - HYPOTENSION [None]
  - PAIN [None]
  - PYREXIA [None]
  - SPLENOMEGALY [None]
